FAERS Safety Report 5441586-8 (Version None)
Quarter: 2007Q3

REPORT INFORMATION
  Report Type: 
  Country: None (occurrence: None)
  Receive Date: 20070829
  Receipt Date: 20070817
  Transmission Date: 20080115
  Serious: Yes (Hospitalization)
  Sender: FDA-Public Use
  Company Number: DSA_30486_2007

PATIENT
  Age: 79 Year
  Sex: Male

DRUGS (9)
  1. ENALAPRIL MALEATE [Suspect]
     Indication: HYPERTENSION
     Dosage: 20 MG QD ORAL
     Route: 048
  2. VALSARTAN [Suspect]
     Indication: HYPERTENSION
     Dosage: 160 MG QD ORAL
     Route: 048
  3. FUROSEMIDE W/SPIRONOLACTONE (FUROSEMIDE W/SPIRONOLACTONE) [Suspect]
     Indication: HYPERTENSION
     Dosage: 20/50 MG DAILY ORAL
     Route: 048
     Dates: start: 20070603, end: 20070617
  4. ALLOPURINOL [Concomitant]
  5. CELIPROLOL HYDROCHLORIDE [Concomitant]
  6. DILTIAZEM HYDROCHLORIDE [Concomitant]
  7. INSULIN GLARGINE [Concomitant]
  8. METFORMIN HYDROCHLORIDE [Concomitant]
  9. PRAVASTATIN [Concomitant]

REACTIONS (8)
  - ASTHENIA [None]
  - BRADYCARDIA [None]
  - CHEST PAIN [None]
  - DISCOMFORT [None]
  - HAEMODIALYSIS [None]
  - HYPERKALAEMIA [None]
  - RENAL FAILURE ACUTE [None]
  - RESPIRATORY DISORDER [None]
